FAERS Safety Report 23329438 (Version 1)
Quarter: 2023Q4

REPORT INFORMATION
  Report Type: Spontaneous
  Country: US (occurrence: US)
  Receive Date: 20231222
  Receipt Date: 20231222
  Transmission Date: 20240110
  Serious: No
  Sender: FDA-Public Use
  Company Number: US-PADAGIS-2023PAD01775

PATIENT

DRUGS (2)
  1. NYSTOP [Suspect]
     Active Substance: NYSTATIN
     Indication: Rash
     Dosage: UNK, UNK
     Route: 065
  2. TALC [Concomitant]
     Active Substance: TALC
     Indication: Product used for unknown indication
     Dosage: UNK
     Route: 065

REACTIONS (3)
  - Drug hypersensitivity [Unknown]
  - Rash [Unknown]
  - Drug ineffective for unapproved indication [Unknown]
